FAERS Safety Report 7511481-9 (Version None)
Quarter: 2011Q2

REPORT INFORMATION
  Report Type: 
  Country: None (occurrence: None)
  Receive Date: 20110531
  Receipt Date: 20110520
  Transmission Date: 20111010
  Serious: No
  Sender: FDA-Public Use
  Company Number: US-US-EMD SERONO, INC.-7011716

PATIENT
  Sex: Female

DRUGS (1)
  1. REBIF [Suspect]
     Indication: MULTIPLE SCLEROSIS
     Route: 058
     Dates: start: 20060710

REACTIONS (7)
  - ALANINE AMINOTRANSFERASE INCREASED [None]
  - CONTUSION [None]
  - BLOOD ALKALINE PHOSPHATASE INCREASED [None]
  - PARAESTHESIA [None]
  - ASPARTATE AMINOTRANSFERASE INCREASED [None]
  - HYPOAESTHESIA [None]
  - MUSCLE SPASMS [None]
